FAERS Safety Report 25551299 (Version 4)
Quarter: 2025Q4

REPORT INFORMATION
  Report Type: Report from Study
  Country: CA (occurrence: CA)
  Receive Date: 20250714
  Receipt Date: 20251028
  Transmission Date: 20260118
  Serious: Yes (Disabling)
  Sender: NOVARTIS
  Company Number: CA-002147023-NVSC2025CA080824

PATIENT
  Age: 52 Year
  Sex: Female

DRUGS (5)
  1. KISQALI [Suspect]
     Active Substance: RIBOCICLIB SUCCINATE
     Indication: Breast cancer metastatic
     Dosage: 600 MG, QD (FOR THE FIRST 2 WEEKS)
     Route: 048
     Dates: start: 20250513
  2. KISQALI [Suspect]
     Active Substance: RIBOCICLIB SUCCINATE
     Dosage: 400 MG, QD (FOR ABOUT 5 DAYS)
     Route: 048
  3. KISQALI [Suspect]
     Active Substance: RIBOCICLIB SUCCINATE
     Dosage: 3 DOSAGE FORM, 600 MG
     Route: 048
     Dates: start: 20250515, end: 20250601
  4. KISQALI [Suspect]
     Active Substance: RIBOCICLIB SUCCINATE
     Dosage: 200 MG, QD, FOR 21 CONSECUTIVE DAYS FOLLOWED BY 7 DAYS OFF (REDUCED DOSE)
     Route: 048
     Dates: start: 20250708
  5. LETROZOLE [Concomitant]
     Active Substance: LETROZOLE
     Indication: Product used for unknown indication
     Dosage: UNK
     Route: 065

REACTIONS (12)
  - Micturition urgency [Unknown]
  - Dysstasia [Recovering/Resolving]
  - Hypoaesthesia [Recovering/Resolving]
  - Sensory loss [Recovering/Resolving]
  - Alopecia [Recovering/Resolving]
  - Muscular weakness [Recovering/Resolving]
  - Gait inability [Recovering/Resolving]
  - Facial paresis [Recovering/Resolving]
  - Hot flush [Unknown]
  - Fatigue [Unknown]
  - Bone pain [Unknown]
  - Arthralgia [Unknown]
